FAERS Safety Report 14416444 (Version 3)
Quarter: 2018Q3

REPORT INFORMATION
  Report Type: Spontaneous
  Country: US (occurrence: US)
  Receive Date: 20180122
  Receipt Date: 20180910
  Transmission Date: 20181010
  Serious: Yes (Other)
  Sender: FDA-Public Use
  Company Number: US-ACCORD-062823

PATIENT
  Age: 58 Year
  Sex: Female
  Weight: 50.5 kg

DRUGS (2)
  1. ESCITALOPRAM ACCORD [Suspect]
     Active Substance: ESCITALOPRAM OXALATE
     Indication: DEPRESSION
     Dosage: STRENGTH: 20 MG?DOSE: 100
     Route: 048
     Dates: start: 2015, end: 20171023
  2. XANAX [Concomitant]
     Active Substance: ALPRAZOLAM
     Indication: ANXIETY
     Route: 048
     Dates: start: 2015

REACTIONS (8)
  - Withdrawal syndrome [Recovered/Resolved]
  - Anxiety [Recovered/Resolved]
  - Injury [Unknown]
  - Agitation [Recovered/Resolved]
  - Bedridden [Unknown]
  - Lyme disease [Unknown]
  - Product quality issue [Unknown]
  - Psychotic disorder [Recovered/Resolved]

NARRATIVE: CASE EVENT DATE: 20170925
